FAERS Safety Report 12663144 (Version 1)
Quarter: 2016Q3

REPORT INFORMATION
  Report Type: Spontaneous
  Country: US (occurrence: None)
  Receive Date: 20160817
  Receipt Date: 20160817
  Transmission Date: 20161109
  Serious: Yes (Life-Threatening, Hospitalization)
  Sender: FDA-Public Use
  Company Number: None

PATIENT
  Age: 15 Year
  Sex: Male
  Weight: 79.38 kg

DRUGS (2)
  1. HUMALOG [Suspect]
     Active Substance: INSULIN LISPRO
     Indication: TYPE 1 DIABETES MELLITUS
     Dosage: GIVEN INTO/UNDER THE SKIN
     Route: 058
     Dates: start: 20050401, end: 20151026
  2. NOVOLOG IN OMNIPOD PUMP [Concomitant]

REACTIONS (7)
  - Syncope [None]
  - Documented hypersensitivity to administered product [None]
  - Urticaria [None]
  - Blood glucose increased [None]
  - Vomiting [None]
  - Malaise [None]
  - Contraindicated product administered [None]

NARRATIVE: CASE EVENT DATE: 20151027
